FAERS Safety Report 8882436 (Version 2)
Quarter: 2012Q4

REPORT INFORMATION
  Report Type: 
  Country: IE (occurrence: IE)
  Receive Date: 20121105
  Receipt Date: 20121211
  Transmission Date: 20130627
  Serious: Yes (Death)
  Sender: FDA-Public Use
  Company Number: IE-JNJFOC-20121016876

PATIENT
  Sex: Female

DRUGS (10)
  1. SIMPONI [Suspect]
     Indication: RHEUMATOID ARTHRITIS
     Route: 058
     Dates: start: 20120522
  2. NU-SEALS [Concomitant]
     Route: 065
  3. JANUVIA [Concomitant]
     Route: 065
  4. ARCOXIA [Concomitant]
     Route: 065
  5. TYLEX [Concomitant]
     Route: 065
  6. SALAZOPYRIN [Concomitant]
     Route: 065
  7. PLAQUENIL [Concomitant]
     Route: 065
  8. CARDURA [Concomitant]
     Route: 065
  9. DIAMICRON [Concomitant]
     Route: 065
  10. ALL OTHER THERAPEUTIC PRODUCTS [Concomitant]
     Route: 065

REACTIONS (1)
  - Death [Fatal]
